FAERS Safety Report 20368601 (Version 1)
Quarter: 2022Q1

REPORT INFORMATION
  Report Type: Spontaneous
  Country: US (occurrence: US)
  Receive Date: 20220124
  Receipt Date: 20220124
  Transmission Date: 20220423
  Serious: No
  Sender: FDA-Public Use
  Company Number: US-SA-SAC20220119000631

PATIENT
  Sex: Male

DRUGS (17)
  1. DUPIXENT [Suspect]
     Active Substance: DUPILUMAB
     Indication: Dermatitis atopic
     Dosage: UNK UNK, TOTAL
     Route: 058
     Dates: start: 20190801, end: 20190801
  2. DUPIXENT [Suspect]
     Active Substance: DUPILUMAB
     Dosage: 300 MG, QOW
     Route: 058
     Dates: start: 2019
  3. AMOXICILLIN [Concomitant]
     Active Substance: AMOXICILLIN
  4. ATORVASTATIN [Concomitant]
     Active Substance: ATORVASTATIN
  5. CARVEDILOL [Concomitant]
     Active Substance: CARVEDILOL
  6. CLOPIDOGREL [Concomitant]
     Active Substance: CLOPIDOGREL BISULFATE
  7. HYDROCODONE [Concomitant]
     Active Substance: HYDROCODONE
  8. IBUPROFEN [Concomitant]
     Active Substance: IBUPROFEN
  9. ISOSORBIDE DINITRATE [Concomitant]
     Active Substance: ISOSORBIDE DINITRATE
  10. OXYCODONE [Concomitant]
     Active Substance: OXYCODONE
  11. ROSUVASTATIN [Concomitant]
     Active Substance: ROSUVASTATIN
  12. TRAMADOL HCL [Concomitant]
     Active Substance: TRAMADOL HYDROCHLORIDE
  13. TRAZODONE HCL [Concomitant]
     Active Substance: TRAZODONE HYDROCHLORIDE
  14. VALACYCLOVIR [Concomitant]
     Active Substance: VALACYCLOVIR HYDROCHLORIDE
     Dosage: UNK
  15. NITROGLYCERIN [Concomitant]
     Active Substance: NITROGLYCERIN
  16. CETIRIZINE [Concomitant]
     Active Substance: CETIRIZINE HYDROCHLORIDE
  17. DICYCLOMINE [Concomitant]
     Active Substance: DICYCLOMINE HYDROCHLORIDE

REACTIONS (1)
  - Product dose omission issue [Unknown]
